FAERS Safety Report 20504427 (Version 1)
Quarter: 2022Q1

REPORT INFORMATION
  Report Type: Spontaneous
  Country: US (occurrence: US)
  Receive Date: 20220222
  Receipt Date: 20220222
  Transmission Date: 20220423
  Serious: Yes (Other)
  Sender: FDA-Public Use
  Company Number: US-COOPERSURGICAL, INC.-US-2022CPS000513

PATIENT
  Age: 22 Year
  Sex: Female
  Weight: 68.934 kg

DRUGS (1)
  1. PARAGARD T 380A [Suspect]
     Active Substance: COPPER
     Indication: Contraception
     Dosage: UNK
     Route: 015
     Dates: start: 20220104, end: 20220115

REACTIONS (7)
  - Retained products of conception [Unknown]
  - Benign hydatidiform mole [Unknown]
  - Post abortion haemorrhage [Unknown]
  - Off label use [Unknown]
  - Muscle spasms [Unknown]
  - Device expulsion [Recovered/Resolved]
  - Intentional medical device removal by patient [Unknown]

NARRATIVE: CASE EVENT DATE: 20220115
